FAERS Safety Report 17278098 (Version 1)
Quarter: 2020Q1

REPORT INFORMATION
  Report Type: Spontaneous
  Country: ES (occurrence: ES)
  Receive Date: 20200116
  Receipt Date: 20200116
  Transmission Date: 20200409
  Serious: Yes (Hospitalization)
  Sender: FDA-Public Use
  Company Number: ES-IPSEN BIOPHARMACEUTICALS, INC.-2020-00959

PATIENT
  Age: 62 Year
  Sex: Male

DRUGS (1)
  1. DYSPORT [Suspect]
     Active Substance: ABOBOTULINUMTOXINA
     Indication: MUSCLE SPASTICITY
     Dosage: 2000 IU
     Route: 030

REACTIONS (4)
  - Dry mouth [Unknown]
  - Muscular weakness [Unknown]
  - Constipation [Unknown]
  - Prescribed overdose [Unknown]
